FAERS Safety Report 9478318 (Version 1)
Quarter: 2013Q3

REPORT INFORMATION
  Report Type: Spontaneous
  Country: GB (occurrence: None)
  Receive Date: 20130821
  Receipt Date: 20130821
  Transmission Date: 20140515
  Serious: Yes (Other)
  Sender: FDA-Public Use
  Company Number: THQ2013A06119

PATIENT
  Sex: 0

DRUGS (1)
  1. LANSOPRAZOLE (LANSOPRAZOLE) [Suspect]

REACTIONS (1)
  - Aspergillus infection [None]
